FAERS Safety Report 11651531 (Version 1)
Quarter: 2015Q4

REPORT INFORMATION
  Report Type: Spontaneous
  Country: US (occurrence: None)
  Receive Date: 20151021
  Receipt Date: 20151021
  Transmission Date: 20160304
  Serious: Yes (Hospitalization)
  Sender: FDA-Public Use
  Company Number: None

PATIENT
  Age: 68 Year
  Sex: Male
  Weight: 63 kg

DRUGS (1)
  1. BENDAMUSTINE HYDROCHLORIDE [Suspect]
     Active Substance: BENDAMUSTINE HYDROCHLORIDE
     Dates: end: 20151019

REACTIONS (8)
  - Flushing [None]
  - Rash macular [None]
  - Hypersensitivity [None]
  - Chills [None]
  - Hypotension [None]
  - Blood lactic acid abnormal [None]
  - Pyrexia [None]
  - Blood creatinine increased [None]

NARRATIVE: CASE EVENT DATE: 20151019
